FAERS Safety Report 4902494-1 (Version None)
Quarter: 2006Q1

REPORT INFORMATION
  Report Type: 
  Country: None (occurrence: None)
  Receive Date: 20060202
  Receipt Date: 20060123
  Transmission Date: 20060701
  Serious: Yes (Death, Hospitalization)
  Sender: FDA-Public Use
  Company Number: HQWYE459323JAN06

PATIENT
  Age: 11 Year
  Sex: Male

DRUGS (7)
  1. OROKEN (CEFIXIME, UNSPEC) [Suspect]
     Dosage: 160 MG DAILY ORAL
     Route: 048
     Dates: start: 20011006, end: 20011010
  2. ALDACTONE [Suspect]
     Dosage: ORAL
     Route: 048
     Dates: start: 20010101, end: 20011101
  3. JOSACINE (JOSAMYCIN, TABLET) [Suspect]
     Dosage: 500 MG TWICE DAILY ORAL
     Route: 048
     Dates: start: 20011009, end: 20011023
  4. PREVISCAN (FLUINDIONE, ) [Suspect]
     Dosage: ORAL
     Route: 048
     Dates: start: 19911101, end: 20011101
  5. DIGOXIN [Concomitant]
  6. LOPRIL (CAPTOPRIL) [Concomitant]
  7. FUROSEMIDE [Concomitant]

REACTIONS (14)
  - BRADYCARDIA [None]
  - COAGULATION FACTOR DECREASED [None]
  - GASTROINTESTINAL HAEMORRHAGE [None]
  - HAEMOGLOBIN DECREASED [None]
  - HAPTOGLOBIN DECREASED [None]
  - HEPATOMEGALY [None]
  - INTERNATIONAL NORMALISED RATIO INCREASED [None]
  - LEUKOCYTOCLASTIC VASCULITIS [None]
  - LYMPHOCYTE PERCENTAGE DECREASED [None]
  - NEUTROPHIL PERCENTAGE INCREASED [None]
  - PERITONEAL EFFUSION [None]
  - PROTHROMBIN TIME RATIO INCREASED [None]
  - PULMONARY HAEMORRHAGE [None]
  - WHITE BLOOD CELL COUNT INCREASED [None]
